FAERS Safety Report 4434164-0 (Version None)
Quarter: 2004Q3

REPORT INFORMATION
  Report Type: 
  Country: None (occurrence: None)
  Receive Date: 20040825
  Receipt Date: 20040810
  Transmission Date: 20050211
  Serious: Yes (Hospitalization)
  Sender: FDA-Public Use
  Company Number: 04P-167-0270231-00

PATIENT
  Age: 61 Year
  Sex: Female
  Weight: 98 kg

DRUGS (5)
  1. HUMIRA [Suspect]
     Indication: RHEUMATOID ARTHRITIS
     Dosage: 40 MG, 1 IN 2 WK, SUBCUTANEOUS
     Route: 058
     Dates: start: 20030327
  2. PENICILLAMINE [Concomitant]
  3. ALENDRONATE SODIUM [Concomitant]
  4. ACETAMINOPHEN W/ CODEINE [Concomitant]
  5. TRAMADOL HCL [Concomitant]

REACTIONS (3)
  - CELLULITIS [None]
  - DISLOCATION OF JOINT PROSTHESIS [None]
  - JOINT ABSCESS [None]
